FAERS Safety Report 15376035 (Version 1)
Quarter: 2018Q3

REPORT INFORMATION
  Report Type: Spontaneous
  Country: US (occurrence: US)
  Receive Date: 20180912
  Receipt Date: 20180912
  Transmission Date: 20181010
  Serious: Yes (Other)
  Sender: FDA-Public Use
  Company Number: US-GILEAD-2018-0362045

PATIENT
  Age: 62 Year
  Sex: Male

DRUGS (4)
  1. RISPERIDONE. [Concomitant]
     Active Substance: RISPERIDONE
  2. LITHIUM CITRATE. [Concomitant]
     Active Substance: LITHIUM CITRATE
  3. VOSEVI [Suspect]
     Active Substance: SOFOSBUVIR\VELPATASVIR\VOXILAPREVIR
     Indication: CHRONIC HEPATITIS C
     Route: 065
  4. DEPAKOTE [Concomitant]
     Active Substance: DIVALPROEX SODIUM

REACTIONS (4)
  - Hepatitis C [Unknown]
  - Treatment failure [Unknown]
  - Genotype drug resistance test positive [Unknown]
  - Drug ineffective [Unknown]
